FAERS Safety Report 25811143 (Version 3)
Quarter: 2025Q4

REPORT INFORMATION
  Report Type: Spontaneous
  Country: JP (occurrence: JP)
  Receive Date: 20250917
  Receipt Date: 20251225
  Transmission Date: 20260118
  Serious: Yes (Hospitalization, Other)
  Sender: BRISTOL-MYERS SQUIBB COMPANY
  Company Number: JP-BRISTOL-MYERS SQUIBB COMPANY-2025-125447

PATIENT
  Age: 5 Decade
  Sex: Female

DRUGS (4)
  1. YERVOY [Suspect]
     Active Substance: IPILIMUMAB
     Indication: Malignant melanoma
     Dosage: IPILIMUMAB?NIVOLUIMAB#1
     Route: 041
  2. YERVOY [Suspect]
     Active Substance: IPILIMUMAB
     Dosage: IPILIMUMAB?NIVOLUIMAB#2
     Route: 041
  3. OPDIVO [Suspect]
     Active Substance: NIVOLUMAB
     Indication: Malignant melanoma
     Dosage: IPILIMUMAB?NIVOLUIMAB#1
  4. OPDIVO [Suspect]
     Active Substance: NIVOLUMAB
     Dosage: IPILIMUMAB?NIVOLUIMAB#2

REACTIONS (2)
  - Hepatic function abnormal [Unknown]
  - Intracranial tumour haemorrhage [Unknown]

NARRATIVE: CASE EVENT DATE: 20240119
